FAERS Safety Report 24140100 (Version 5)
Quarter: 2024Q4

REPORT INFORMATION
  Report Type: Report from Study
  Country: US (occurrence: US)
  Receive Date: 20240726
  Receipt Date: 20241224
  Transmission Date: 20250115
  Serious: No
  Sender: JOHNSON AND JOHNSON
  Company Number: US-JNJFOC-20240711133

PATIENT
  Age: 33 Year
  Sex: Female

DRUGS (4)
  1. STELARA [Suspect]
     Active Substance: USTEKINUMAB
     Indication: Colitis ulcerative
     Route: 058
     Dates: start: 20240422
  2. STELARA [Suspect]
     Active Substance: USTEKINUMAB
  3. STELARA [Suspect]
     Active Substance: USTEKINUMAB
     Indication: Colitis ulcerative
     Route: 058
     Dates: start: 20240422
  4. STELARA [Suspect]
     Active Substance: USTEKINUMAB

REACTIONS (6)
  - Product dose omission issue [Unknown]
  - Needle issue [Unknown]
  - Syringe issue [Unknown]
  - Device defective [Unknown]
  - Pyrexia [Recovered/Resolved]
  - Viral rash [Recovered/Resolved]

NARRATIVE: CASE EVENT DATE: 20240617
